FAERS Safety Report 6194902-6 (Version None)
Quarter: 2009Q2

REPORT INFORMATION
  Report Type: 
  Country: None (occurrence: None)
  Receive Date: 20090519
  Receipt Date: 20090402
  Transmission Date: 20091009
  Serious: Yes (Death)
  Sender: FDA-Public Use
  Company Number: US-TYCO HEALTHCARE/MALLINCKRODT-T200900741

PATIENT
  Sex: Male
  Weight: 86 kg

DRUGS (10)
  1. METHADONE [Suspect]
     Indication: BACK PAIN
     Dosage: 10 MG, QID
  2. METHADONE [Suspect]
     Indication: NECK PAIN
  3. METHADONE [Suspect]
     Dosage: 10 MG, QID
     Dates: start: 20050601
  4. METHADONE [Suspect]
  5. SYMBYAX                            /01689601/ [Suspect]
  6. VALIUM [Suspect]
  7. XANAX [Suspect]
  8. CYMBALTA [Concomitant]
  9. ROZEREM [Concomitant]
  10. TOPAMAX [Concomitant]
     Dosage: 25 MG, 5X/DAY

REACTIONS (1)
  - DRUG TOXICITY [None]
